FAERS Safety Report 16169319 (Version 1)
Quarter: 2019Q2

REPORT INFORMATION
  Report Type: Report from Study
  Country: US (occurrence: US)
  Receive Date: 20190408
  Receipt Date: 20190408
  Transmission Date: 20190711
  Serious: No
  Sender: FDA-Public Use
  Company Number: PHEH2019US014886

PATIENT
  Age: 79 Year
  Sex: Female

DRUGS (1)
  1. COSENTYX [Suspect]
     Active Substance: SECUKINUMAB
     Indication: PSORIASIS
     Dosage: 300 MG, QMO (ONCE EVERY 4 WEEKS)
     Route: 058

REACTIONS (6)
  - Blister rupture [Unknown]
  - Feeding disorder [Unknown]
  - Skin burning sensation [Not Recovered/Not Resolved]
  - Oral candidiasis [Unknown]
  - Dysphagia [Unknown]
  - Skin exfoliation [Unknown]
